FAERS Safety Report 25115516 (Version 2)
Quarter: 2025Q2

REPORT INFORMATION
  Report Type: Spontaneous
  Country: US (occurrence: US)
  Receive Date: 20250324
  Receipt Date: 20250409
  Transmission Date: 20250717
  Serious: No
  Sender: PIRAMAL
  Company Number: US-PCCINC-2025-PPL-000170

PATIENT

DRUGS (1)
  1. GABLOFEN [Suspect]
     Active Substance: BACLOFEN
     Indication: Muscle spasticity
     Route: 037

REACTIONS (2)
  - Withdrawal syndrome [Unknown]
  - Withdrawal syndrome [Unknown]

NARRATIVE: CASE EVENT DATE: 20241028
